FAERS Safety Report 14218075 (Version 1)
Quarter: 2017Q4

REPORT INFORMATION
  Report Type: Spontaneous
  Country: US (occurrence: US)
  Receive Date: 20171123
  Receipt Date: 20171123
  Transmission Date: 20180321
  Serious: No
  Sender: FDA-Public Use
  Company Number: US-ELI_LILLY_AND_COMPANY-US201711009732

PATIENT
  Age: 79 Year
  Sex: Male

DRUGS (3)
  1. HUMALOG [Suspect]
     Active Substance: INSULIN LISPRO
     Indication: TYPE 2 DIABETES MELLITUS
     Dosage: 16 UG, DAILY, WITH MEAL
     Route: 058
     Dates: start: 2008
  2. LANTUS [Concomitant]
     Active Substance: INSULIN GLARGINE
     Indication: TYPE 2 DIABETES MELLITUS
  3. HUMALOG [Suspect]
     Active Substance: INSULIN LISPRO
     Dosage: 16 UG, DAILY, WITH MEAL
     Route: 058
     Dates: start: 2008

REACTIONS (4)
  - Drug ineffective [Unknown]
  - Blood glucose increased [Recovering/Resolving]
  - Stress [Unknown]
  - Eating disorder [Unknown]

NARRATIVE: CASE EVENT DATE: 20171113
